FAERS Safety Report 22020011 (Version 1)
Quarter: 2023Q1

REPORT INFORMATION
  Report Type: Spontaneous
  Country: DE (occurrence: DE)
  Receive Date: 20230222
  Receipt Date: 20230222
  Transmission Date: 20230417
  Serious: Yes (Other)
  Sender: FDA-Public Use
  Company Number: DE-JNJFOC-20230216621

PATIENT
  Sex: Female

DRUGS (17)
  1. POLATUZUMAB VEDOTIN [Suspect]
     Active Substance: POLATUZUMAB VEDOTIN
     Indication: Diffuse large B-cell lymphoma
     Dosage: THIRD LINE WITH RITUXIMAB AND BENDAMUSTINE, THREE TIMES, MOST RECENT DOSE 20/SEP/2022
     Route: 065
     Dates: start: 20220613
  2. RITUXIMAB [Suspect]
     Active Substance: RITUXIMAB
     Indication: Diffuse large B-cell lymphoma
     Dosage: FIRST LINE WITH CHOP
     Route: 065
     Dates: start: 20210701, end: 20211101
  3. RITUXIMAB [Suspect]
     Active Substance: RITUXIMAB
     Dosage: THIRD LINE WITH POLATUZUMAB AND BENDAMUSTINE, THREE TIMES
     Route: 065
     Dates: start: 20220613, end: 20220920
  4. RITUXIMAB [Suspect]
     Active Substance: RITUXIMAB
     Dosage: SECOND LINE WITH DHAP, TWICE, MOST RECENT DOSE 25/MAY/2022
     Route: 065
     Dates: start: 20220330
  5. OBINUTUZUMAB [Suspect]
     Active Substance: OBINUTUZUMAB
     Indication: Diffuse large B-cell lymphoma
     Dosage: FOURTH LINE WITH VENETOCLAX, IBRUTINIB, PREDNISOLONE, LENALOMIDE AND RADIOTHERAPY, MOST RECENT DOSE
     Route: 042
     Dates: start: 20220927
  6. VENETOCLAX [Suspect]
     Active Substance: VENETOCLAX
     Indication: Diffuse large B-cell lymphoma
     Dosage: FOURTH LINE WITH OBINUTUZUMAB, IBRUTINIB, PREDNISOLONE, LENALOMIDE AND RADIOTHERAPY, MOST RECENT DOS
     Route: 065
     Dates: start: 20220927
  7. PREDNISONE [Suspect]
     Active Substance: PREDNISONE
     Indication: Diffuse large B-cell lymphoma
     Dosage: FIRST LINE WITH RITUXIMAB, AS A PART OF CHOP, MOST RECENT DOSE 01/NOV/2021
     Route: 065
     Dates: start: 20210701
  8. CYTARABINE [Suspect]
     Active Substance: CYTARABINE
     Indication: Diffuse large B-cell lymphoma
     Dosage: SECOND LINE WITH RITUXIMAB, TWICE, AS A PART OF DHAP, MOST RECENT DOSE 25/MAY/2022
     Route: 065
     Dates: start: 20220330
  9. VINCRISTINE SULFATE [Suspect]
     Active Substance: VINCRISTINE SULFATE
     Indication: Diffuse large B-cell lymphoma
     Dosage: FIRST LINE WITH RITUXIMAB, AS A PART OF CHOP, MOST RECENT DOSE 01/NOV/2021
     Route: 065
     Dates: start: 20210701
  10. CISPLATIN [Suspect]
     Active Substance: CISPLATIN
     Indication: Diffuse large B-cell lymphoma
     Dosage: SECOND LINE WITH RITUXIMAB, TWICE, AS A PART OF DHA, MOST RECENT DOSE 25/MAY/2022
     Route: 065
     Dates: start: 20220330
  11. IMBRUVICA [Suspect]
     Active Substance: IBRUTINIB
     Indication: Diffuse large B-cell lymphoma
     Dosage: FOURTH LINE WITH OBINUTUZUMAB, VENETOCLAX, PREDNISOLONE, LENALOMIDE AND RADIOTHERAPY, MOST RECENT DO
     Route: 065
     Dates: start: 20220927
  12. DEXAMETHASONE [Suspect]
     Active Substance: DEXAMETHASONE
     Indication: Diffuse large B-cell lymphoma
     Dosage: SECOND LINE WITH RITUXIMAB, TWICE, AS A PART OF DHAP, MOST RECENT DOSE 25/MAY/2022
     Route: 065
     Dates: start: 20220330
  13. DOXORUBICIN HYDROCHLORIDE [Suspect]
     Active Substance: DOXORUBICIN HYDROCHLORIDE
     Indication: Diffuse large B-cell lymphoma
     Dosage: FIRST LINE WITH RITUXIMAB, AS A PART OF CHOP, MOST RECENT DOSE 01/NOV/2021
     Route: 065
     Dates: start: 20210701
  14. BENDAMUSTINE HYDROCHLORIDE [Suspect]
     Active Substance: BENDAMUSTINE HYDROCHLORIDE
     Indication: Diffuse large B-cell lymphoma
     Dosage: THIRD LINE WITH POLATUZUMAB AND RITUXIMAB, THREE TIMES, MOST RECENT DOSE 20/SEP/2022
     Route: 065
     Dates: start: 20220613
  15. CYCLOPHOSPHAMIDE [Suspect]
     Active Substance: CYCLOPHOSPHAMIDE
     Indication: Diffuse large B-cell lymphoma
     Dosage: FIRST LINE WITH RITUXIMAB, AS A PART OF CHOP, MOST RECENT DOSE 01/NOV/2021
     Route: 065
     Dates: start: 20210701
  16. LENALIDOMIDE [Suspect]
     Active Substance: LENALIDOMIDE
     Indication: Diffuse large B-cell lymphoma
     Dosage: FOURTH LINE WITH OBINUTUZUMAB, IBRUTINIB, PREDNISOLONE, VENETOCLAX AND RADIOTHERAPY, MOST RECENT DOS
     Route: 065
     Dates: start: 20220927
  17. PREDNISOLONE ACETATE [Suspect]
     Active Substance: PREDNISOLONE ACETATE
     Indication: Diffuse large B-cell lymphoma
     Dosage: FOURTH LINE WITH OBINUTUZUMAB, IBRUTINIB, VENETCLAX, LENALOMIDE AND RADIOTHERAPY, MOST RECENT DOSE 1
     Route: 065
     Dates: start: 20220927

REACTIONS (1)
  - Lymphoma [Unknown]
